FAERS Safety Report 5381344-6 (Version None)
Quarter: 2007Q2

REPORT INFORMATION
  Report Type: 
  Country: None (occurrence: None)
  Receive Date: 20070629
  Receipt Date: 20061110
  Transmission Date: 20071010
  Serious: Yes (Other)
  Sender: FDA-Public Use
  Company Number: 2006138595

PATIENT
  Age: 77 Year
  Sex: Female

DRUGS (6)
  1. SERTRALINE [Suspect]
     Dates: start: 20060904
  2. ZOLOFT [Suspect]
     Dosage: 100 MG (50 MG, 2 IN 1 D)
     Dates: start: 20060801
  3. CLONAZEPAM [Concomitant]
  4. TEMAZEPAM [Concomitant]
  5. GABITRIL [Concomitant]
  6. PROMETHAZINE [Concomitant]

REACTIONS (2)
  - HEART RATE INCREASED [None]
  - NAUSEA [None]
